FAERS Safety Report 5477044-4 (Version None)
Quarter: 2007Q3

REPORT INFORMATION
  Report Type: 
  Country: None (occurrence: None)
  Receive Date: 20070831
  Receipt Date: 20070525
  Transmission Date: 20080115
  Serious: No
  Sender: FDA-Public Use
  Company Number: US-JNJFOC-20070601586

PATIENT
  Age: 67 Year
  Sex: Male
  Weight: 81.6475 kg

DRUGS (8)
  1. DACOGEN [Suspect]
     Indication: MYELODYSPLASTIC SYNDROME
     Dosage: RECEIVED 4 CYCLES COMPLETED 1 FULL CYCLE INTRAVENOUS 20 MG/M2, INTRAVENOUS
     Route: 042
     Dates: start: 20070514, end: 20070518
  2. DACOGEN [Suspect]
     Indication: MYELODYSPLASTIC SYNDROME
     Dosage: RECEIVED 4 CYCLES COMPLETED 1 FULL CYCLE INTRAVENOUS 20 MG/M2, INTRAVENOUS
     Route: 042
     Dates: start: 20070604
  3. DECADRON [Suspect]
     Indication: ANTIEMETIC SUPPORTIVE CARE
     Dates: start: 20070604
  4. ANZAMET (DOLASETRON MESILATE) UNSPECIFIED [Suspect]
     Indication: ANTIEMETIC SUPPORTIVE CARE
     Dates: start: 20070604
  5. LOTREL [Concomitant]
  6. PROCRIT [Concomitant]
  7. BLOOD PRESSURE MEDICATION (ANTIHYPERTENSIVES) [Concomitant]
  8. ACETAMINOPHEN [Concomitant]

REACTIONS (12)
  - ARTHRALGIA [None]
  - ASTHENIA [None]
  - BLOOD COUNT ABNORMAL [None]
  - CHILLS [None]
  - DISCOMFORT [None]
  - HOT FLUSH [None]
  - JOINT SWELLING [None]
  - LIP SWELLING [None]
  - MUSCLE SPASMS [None]
  - NAUSEA [None]
  - NIGHT SWEATS [None]
  - PAIN IN EXTREMITY [None]
